FAERS Safety Report 4352963-0 (Version None)
Quarter: 2004Q2

REPORT INFORMATION
  Report Type: 
  Country: None (occurrence: None)
  Receive Date: 20040430
  Receipt Date: 20040219
  Transmission Date: 20050107
  Serious: No
  Sender: FDA-Public Use
  Company Number: 204277

PATIENT
  Age: 49 Year
  Sex: Female

DRUGS (4)
  1. XOLAIR [Suspect]
     Indication: ASTHMA
     Dosage: 225 MG, Q2W, SUBCUTANEOUS
     Route: 058
     Dates: start: 20031001
  2. ASPIRIN [Concomitant]
  3. PREDNISONE [Concomitant]
  4. COMBIVENT (IPRATROPIUM BRMODIE, ALBTUEROL, ALBUTEROL SULFATE) [Concomitant]

REACTIONS (1)
  - SYNCOPE [None]
